FAERS Safety Report 5247147-8 (Version None)
Quarter: 2007Q1

REPORT INFORMATION
  Report Type: 
  Country: None (occurrence: None)
  Receive Date: 20070221
  Receipt Date: 20070209
  Transmission Date: 20070707
  Serious: Yes (Disabling, Other)
  Sender: FDA-Public Use
  Company Number: 163-C5013-06081403

PATIENT
  Age: 77 Year
  Sex: Male
  Weight: 53.9 kg

DRUGS (15)
  1. CC-5013 (LENALIDOMIDE) (CAPSULES) [Suspect]
     Indication: MULTIPLE MYELOMA
     Dosage: SEE IMAGE
     Route: 048
     Dates: start: 20060516, end: 20060731
  2. CC-5013 (LENALIDOMIDE) (CAPSULES) [Suspect]
     Indication: MULTIPLE MYELOMA
     Dosage: SEE IMAGE
     Route: 048
     Dates: start: 20060808, end: 20060821
  3. CC-5013 (LENALIDOMIDE) (CAPSULES) [Suspect]
     Indication: MULTIPLE MYELOMA
     Dosage: SEE IMAGE
     Route: 048
     Dates: start: 20061215
  4. CC-5013 (LENALIDOMIDE) (CAPSULES) [Suspect]
  5. DECADRON [Suspect]
     Indication: MULTIPLE MYELOMA
     Dosage: SEE IMAGE
     Route: 048
     Dates: start: 20060516, end: 20060714
  6. DECADRON [Suspect]
     Indication: MULTIPLE MYELOMA
     Dosage: SEE IMAGE
     Route: 048
     Dates: start: 20060808
  7. ONE A DAY (MULTIPLE VITAMINS) (TABLETS) [Concomitant]
  8. DIFLUCAN [Concomitant]
  9. CARAFATE [Concomitant]
  10. LEVAQUIN [Concomitant]
  11. PERCOCET [Concomitant]
  12. HYTRIN [Concomitant]
  13. DIOVAN [Concomitant]
  14. ATIVAN [Concomitant]
  15. PRILOSEC [Concomitant]

REACTIONS (6)
  - ANAEMIA [None]
  - BACK PAIN [None]
  - BLINDNESS [None]
  - CEREBROVASCULAR ACCIDENT [None]
  - CONSTIPATION [None]
  - DRUG INEFFECTIVE [None]
